FAERS Safety Report 5840906-X (Version None)
Quarter: 2008Q3

REPORT INFORMATION
  Report Type: 
  Country: None (occurrence: None)
  Receive Date: 20080731
  Receipt Date: 20080508
  Transmission Date: 20090109
  Serious: No
  Sender: FDA-Public Use
  Company Number: US200805001875

PATIENT
  Age: 60 Year
  Sex: Female
  Weight: 90.7 kg

DRUGS (10)
  1. BYETTA [Suspect]
     Indication: TYPE 2 DIABETES MELLITUS
     Dosage: 5 UG, 2/D, SUBCUTANEOUS; 5 UG, 2/D, SUBCUTANEOUS
     Route: 058
     Dates: start: 20060101, end: 20060101
  2. BYETTA [Suspect]
     Indication: TYPE 2 DIABETES MELLITUS
     Dosage: 5 UG, 2/D, SUBCUTANEOUS; 5 UG, 2/D, SUBCUTANEOUS
     Route: 058
     Dates: start: 20080502
  3. GLIPIZIDE [Concomitant]
  4. LISINOPRIL /USA/ (LISINOPRIL) [Concomitant]
  5. LIBRIUM [Concomitant]
  6. XANAX /USA/ (ALPRAZOLAM) [Concomitant]
  7. VYTORIN [Concomitant]
  8. IBUPROFEN SODIUM (IBUPROFEN SODIUM) [Concomitant]
  9. ASPIRIN [Concomitant]
  10. INSULIN (INSULIN) [Concomitant]

REACTIONS (10)
  - BLOOD GLUCOSE DECREASED [None]
  - BLOOD GLUCOSE INCREASED [None]
  - DIARRHOEA [None]
  - DIZZINESS [None]
  - DRUG INEFFECTIVE [None]
  - DYSPEPSIA [None]
  - FLATULENCE [None]
  - HEADACHE [None]
  - NAUSEA [None]
  - TREMOR [None]
